FAERS Safety Report 12627658 (Version 1)
Quarter: 2016Q3

REPORT INFORMATION
  Report Type: Spontaneous
  Country: DE (occurrence: DE)
  Receive Date: 20160805
  Receipt Date: 20160805
  Transmission Date: 20161109
  Serious: Yes (Congenital Anomaly, Other)
  Sender: FDA-Public Use
  Company Number: GXKR2016DE003668

PATIENT

DRUGS (5)
  1. MIRTAZAPINE. [Suspect]
     Active Substance: MIRTAZAPINE
     Indication: SCHIZOPHRENIA
     Dosage: 30 MG/DAY (GW 5 TO 39.0); FROM GW 33+5, REGULARLY
     Route: 064
  2. SEROQUEL [Suspect]
     Active Substance: QUETIAPINE FUMARATE
     Indication: PSYCHOTIC DISORDER
     Dosage: 900 MG/DAY (GW 5 TO 39.0); FROM GW 33+5 REGULARLY
     Route: 064
  3. VENLAFAXINE [Suspect]
     Active Substance: VENLAFAXINE HYDROCHLORIDE
     Indication: SCHIZOPHRENIA
     Dosage: 150 MG/DAY, START UNKNOWN, PROBABLY 3RD TRIMESTER
     Route: 064
  4. LORAZEPAM. [Suspect]
     Active Substance: LORAZEPAM
     Indication: SCHIZOPHRENIA
     Dosage: 0.5 MG/DAY (GW 5 TO 39.0); FROM GW 33+5, IRREGULARLY
     Route: 064
  5. RISPERIDONE. [Suspect]
     Active Substance: RISPERIDONE
     Indication: SCHIZOPHRENIA
     Dosage: 1 MG, TWICE DAILY (THIRD TRIMESTER)
     Route: 064

REACTIONS (5)
  - Congenital central nervous system anomaly [Not Recovered/Not Resolved]
  - Arachnoid cyst [Unknown]
  - Small for dates baby [Recovering/Resolving]
  - Selective eating disorder [Recovered/Resolved]
  - Respiratory disorder neonatal [Recovered/Resolved]

NARRATIVE: CASE EVENT DATE: 20160403
